FAERS Safety Report 14539629 (Version 1)
Quarter: 2018Q1

REPORT INFORMATION
  Report Type: Spontaneous
  Country: US (occurrence: US)
  Receive Date: 20180215
  Receipt Date: 20180215
  Transmission Date: 20180509
  Serious: No
  Sender: FDA-Public Use
  Company Number: None

PATIENT
  Age: 50 Year
  Sex: Female

DRUGS (1)
  1. LOW-OGESTREL [Suspect]
     Active Substance: ETHINYL ESTRADIOL\NORGESTREL
     Route: 048
     Dates: start: 20171205

REACTIONS (3)
  - Anxiety [None]
  - Gastrointestinal disorder [None]
  - Nausea [None]

NARRATIVE: CASE EVENT DATE: 20180215
